FAERS Safety Report 21424385 (Version 1)
Quarter: 2022Q4

REPORT INFORMATION
  Report Type: Report from Study
  Country: US (occurrence: US)
  Receive Date: 20221007
  Receipt Date: 20221007
  Transmission Date: 20230112
  Serious: Yes (Other)
  Sender: FDA-Public Use
  Company Number: US-GILEAD-2022-0599862

PATIENT
  Age: 74 Year
  Sex: Male

DRUGS (6)
  1. BREXUCABTAGENE AUTOLEUCEL [Suspect]
     Active Substance: BREXUCABTAGENE AUTOLEUCEL
     Indication: Mantle cell lymphoma
     Route: 065
  2. CYCLOPHOSPHAMIDE [Concomitant]
     Active Substance: CYCLOPHOSPHAMIDE
     Indication: Lymphodepletion
     Dosage: 500 MG/M2
  3. FLUDARABINE [Concomitant]
     Active Substance: FLUDARABINE PHOSPHATE
     Indication: Lymphodepletion
     Dosage: 15 MG/M2
  4. MESNA [Concomitant]
     Active Substance: MESNA
  5. SEVELAMER [Concomitant]
     Active Substance: SEVELAMER
     Indication: Hyperphosphataemia
  6. HYDRALAZINE [Concomitant]
     Active Substance: HYDRALAZINE HYDROCHLORIDE
     Indication: Hypertension

REACTIONS (2)
  - Disease progression [Unknown]
  - Cytokine release syndrome [Unknown]
